FAERS Safety Report 10410029 (Version 1)
Quarter: 2014Q3

REPORT INFORMATION
  Report Type: Spontaneous
  Country: BG (occurrence: BG)
  Receive Date: 20140826
  Receipt Date: 20140826
  Transmission Date: 20150326
  Serious: Yes (Hospitalization)
  Sender: FDA-Public Use
  Company Number: PHHY2014BG104741

PATIENT
  Age: 58 Year
  Sex: Male

DRUGS (5)
  1. LEVOFLOXACIN [Suspect]
     Active Substance: LEVOFLOXACIN
     Indication: BRONCHOPNEUMONIA
  2. MEDOCEF [Suspect]
     Active Substance: CEFOPERAZONE
     Dosage: 1 G, BID
     Route: 042
  3. AMIKACIN [Interacting]
     Active Substance: AMIKACIN
     Indication: BRONCHOPNEUMONIA
  4. SPIRIT//ETHANOL [Interacting]
     Active Substance: ALCOHOL
     Dosage: 50 ML
  5. SYMPATHOMIMETICS [Concomitant]
     Active Substance: UNSPECIFIED INGREDIENT

REACTIONS (18)
  - Sinus tachycardia [Recovered/Resolved]
  - Flushing [Recovered/Resolved]
  - Nausea [Recovered/Resolved]
  - Palpitations [Recovered/Resolved]
  - Swollen tongue [Recovered/Resolved]
  - Rhonchi [Recovered/Resolved]
  - Tremor [Recovered/Resolved]
  - Tongue dry [Recovered/Resolved]
  - Alcohol interaction [Unknown]
  - Swelling face [Recovered/Resolved]
  - Asthenia [Recovered/Resolved]
  - Hypotension [Recovered/Resolved]
  - Hyperhidrosis [Recovered/Resolved]
  - Dyspnoea [Recovered/Resolved]
  - Breath sounds abnormal [Recovered/Resolved]
  - Tachypnoea [Recovered/Resolved]
  - Alcohol intolerance [Recovered/Resolved]
  - Ventricular extrasystoles [Recovered/Resolved]
